FAERS Safety Report 12962096 (Version 1)
Quarter: 2016Q4

REPORT INFORMATION
  Report Type: Spontaneous
  Country: US (occurrence: US)
  Receive Date: 20161121
  Receipt Date: 20161121
  Transmission Date: 20170207
  Serious: No
  Sender: FDA-Public Use
  Company Number: US-COLLEGIUM PHARMACEUTICAL, INC.-2016CGM00016

PATIENT
  Age: 57 Year
  Sex: Male
  Weight: 68.27 kg

DRUGS (4)
  1. PROBUPHINE [Suspect]
     Active Substance: BUPRENORPHINE HYDROCHLORIDE
     Dosage: 74.2 MG, 4 IMPLANTS
     Dates: start: 20160613
  2. XTAMPZA ER [Suspect]
     Active Substance: OXYCODONE
     Dosage: 300 MG, 1X/DAY
  3. MORPHINE [Suspect]
     Active Substance: MORPHINE
     Dosage: 300 MG, 1X/DAY
  4. UNSPECIFIED HEART MAINTENANCE MEDICATIONS [Concomitant]
     Active Substance: UNSPECIFIED INGREDIENT

REACTIONS (2)
  - Gait disturbance [Not Recovered/Not Resolved]
  - Hypoaesthesia [Not Recovered/Not Resolved]

NARRATIVE: CASE EVENT DATE: 201606
